FAERS Safety Report 23111648 (Version 1)
Quarter: 2023Q4

REPORT INFORMATION
  Report Type: Spontaneous
  Country: US (occurrence: None)
  Receive Date: 20231023
  Receipt Date: 20231023
  Transmission Date: 20240110
  Serious: Yes (Hospitalization)
  Sender: FDA-Public Use
  Company Number: None

PATIENT
  Sex: Female

DRUGS (2)
  1. OPSUMIT [Suspect]
     Active Substance: MACITENTAN
     Indication: Pulmonary arterial hypertension
     Dosage: FREQUENCY : DAILY;?
     Route: 048
     Dates: start: 202309
  2. REMODULIN [Suspect]
     Active Substance: TREPROSTINIL

REACTIONS (6)
  - Nausea [None]
  - Headache [None]
  - Arthralgia [None]
  - Pain in extremity [None]
  - Hypervolaemia [None]
  - Dyspnoea [None]
